FAERS Safety Report 17549462 (Version 17)
Quarter: 2022Q2

REPORT INFORMATION
  Report Type: Spontaneous
  Country: BR (occurrence: BR)
  Receive Date: 20200317
  Receipt Date: 20220628
  Transmission Date: 20220721
  Serious: Yes (Life-Threatening, Hospitalization, Other)
  Sender: FDA-Public Use
  Company Number: BR-GLAXOSMITHKLINE-BR2019AMR196373

PATIENT

DRUGS (12)
  1. NUCALA [Suspect]
     Active Substance: MEPOLIZUMAB
     Indication: Asthma
     Dosage: 100 MG, UNK
     Route: 042
     Dates: start: 20191015, end: 20200310
  2. ALBUTEROL [Suspect]
     Active Substance: ALBUTEROL
     Indication: Asthma
     Dosage: UNK
  3. ALBUTEROL [Suspect]
     Active Substance: ALBUTEROL
     Indication: Dyspnoea
  4. ALBUTEROL [Suspect]
     Active Substance: ALBUTEROL
     Indication: Product used for unknown indication
     Dosage: UNK
  5. CEFUROXIME [Suspect]
     Active Substance: CEFUROXIME
     Indication: Product used for unknown indication
     Dosage: 250 MG, BID
     Dates: end: 20200730
  6. SPIRIVA [Suspect]
     Active Substance: TIOTROPIUM BROMIDE MONOHYDRATE
     Indication: Dyspnoea
     Dosage: UNK
     Dates: start: 201903
  7. KETOPROFEN [Suspect]
     Active Substance: KETOPROFEN
     Indication: Product used for unknown indication
     Dosage: UNK
  8. TRAMADOL [Suspect]
     Active Substance: TRAMADOL
     Indication: Product used for unknown indication
     Dosage: UNK
  9. BUTYLSCOPOLAMINE BROMIDE [Suspect]
     Active Substance: BUTYLSCOPOLAMINE BROMIDE
     Indication: Product used for unknown indication
     Dosage: UNK
  10. SYMBICORT [Suspect]
     Active Substance: BUDESONIDE\FORMOTEROL FUMARATE DIHYDRATE
     Indication: Dyspnoea
     Dosage: UNK
     Dates: start: 201903
  11. SINGULAIR [Concomitant]
     Active Substance: MONTELUKAST SODIUM
     Indication: Dyspnoea
     Dosage: UNK UNK, QD (1 AT NIGHT)
  12. AZITHROMYCIN [Concomitant]
     Active Substance: AZITHROMYCIN
     Indication: Product used for unknown indication
     Dosage: UNK

REACTIONS (60)
  - Cardio-respiratory arrest [Unknown]
  - Urinary tract infection [Not Recovered/Not Resolved]
  - Wrist fracture [Recovered/Resolved]
  - Nephrolithiasis [Recovered/Resolved]
  - Urinary tract pain [Recovered/Resolved]
  - Pollakiuria [Recovered/Resolved]
  - Blood urine [Recovered/Resolved]
  - Asthma [Unknown]
  - Asthmatic crisis [Recovered/Resolved]
  - Kidney infection [Unknown]
  - Pyelonephritis [Unknown]
  - Coma [Unknown]
  - Dyspnoea [Not Recovered/Not Resolved]
  - Coronavirus test positive [Recovered/Resolved]
  - Surgery [Recovered/Resolved]
  - Endotracheal intubation [Unknown]
  - Nausea [Recovering/Resolving]
  - Vomiting [Unknown]
  - Dizziness [Recovering/Resolving]
  - Vertigo [Recovering/Resolving]
  - Fatigue [Not Recovered/Not Resolved]
  - Headache [Recovering/Resolving]
  - Aphonia [Recovered/Resolved]
  - Cough [Recovered/Resolved]
  - Productive cough [Recovered/Resolved]
  - Fall [Recovered/Resolved]
  - Ankle fracture [Recovered/Resolved]
  - Radius fracture [Unknown]
  - Ligament rupture [Unknown]
  - Fracture pain [Recovering/Resolving]
  - Retching [Unknown]
  - Insomnia [Unknown]
  - Malaise [Recovered/Resolved]
  - Balance disorder [Unknown]
  - Joint swelling [Unknown]
  - Skin discolouration [Unknown]
  - Crying [Unknown]
  - Weight increased [Recovering/Resolving]
  - Vision blurred [Recovering/Resolving]
  - White blood cell count increased [Unknown]
  - Neutrophil count increased [Unknown]
  - Monocyte count increased [Unknown]
  - Sleep disorder due to a general medical condition [Unknown]
  - Pain [Recovering/Resolving]
  - Sedation [Unknown]
  - Pyrexia [Not Recovered/Not Resolved]
  - Rhinitis [Not Recovered/Not Resolved]
  - Nodule [Not Recovered/Not Resolved]
  - Social problem [Unknown]
  - Therapy interrupted [Unknown]
  - Product dose omission issue [Unknown]
  - Wrong technique in product usage process [Unknown]
  - Drug ineffective [Unknown]
  - Swelling [Unknown]
  - Coronavirus infection [Recovered/Resolved]
  - Malaise [Unknown]
  - Nail discolouration [Unknown]
  - Pulmonary pain [Not Recovered/Not Resolved]
  - Chest pain [Not Recovered/Not Resolved]
  - Inappropriate schedule of product administration [Not Recovered/Not Resolved]

NARRATIVE: CASE EVENT DATE: 20191025
